FAERS Safety Report 15393530 (Version 1)
Quarter: 2018Q3

REPORT INFORMATION
  Report Type: Spontaneous
  Country: US (occurrence: US)
  Receive Date: 20180911
  Receipt Date: 20180911
  Transmission Date: 20181010
  Serious: Yes (Hospitalization)
  Sender: FDA-Public Use
  Company Number: None

PATIENT
  Sex: Male

DRUGS (16)
  1. ERIVEDGE [Suspect]
     Active Substance: VISMODEGIB
     Indication: PRODUCT USED FOR UNKNOWN INDICATION
     Route: 048
     Dates: start: 20180810
  2. CLONIDINE. [Concomitant]
     Active Substance: CLONIDINE
  3. WARFARIN [Concomitant]
     Active Substance: WARFARIN
  4. HYDROCO/APAP [Concomitant]
     Active Substance: ACETAMINOPHEN\HYDROCODONE
  5. CARVEDILOL. [Concomitant]
     Active Substance: CARVEDILOL
  6. DEXILANT [Concomitant]
     Active Substance: DEXLANSOPRAZOLE
  7. AMLODIPINE [Concomitant]
     Active Substance: AMLODIPINE BESYLATE
  8. HYDRALAZINE [Concomitant]
     Active Substance: HYDRALAZINE HYDROCHLORIDE
  9. PENTOXIFYLLI [Concomitant]
  10. PRAVASTATIN. [Concomitant]
     Active Substance: PRAVASTATIN
  11. NYSTATIN. [Concomitant]
     Active Substance: NYSTATIN
  12. PREDNISONE. [Concomitant]
     Active Substance: PREDNISONE
  13. CALC ACETATE [Concomitant]
     Active Substance: CALCIUM ACETATE
  14. TERAZOSIN [Concomitant]
     Active Substance: TERAZOSIN\TERAZOSIN HYDROCHLORIDE
  15. METHYLPRED [Concomitant]
     Active Substance: METHYLPREDNISOLONE
  16. ASPIRIN. [Concomitant]
     Active Substance: ASPIRIN

REACTIONS (2)
  - Therapy cessation [None]
  - Drug dose omission [None]
